FAERS Safety Report 23286184 (Version 1)
Quarter: 2023Q4

REPORT INFORMATION
  Report Type: Other
  Country: US (occurrence: US)
  Receive Date: 20231212
  Receipt Date: 20231212
  Transmission Date: 20240109
  Serious: Yes (Hospitalization)
  Sender: FDA-Public Use
  Company Number: US-Bion-012425

PATIENT
  Age: 60 Year
  Sex: Male

DRUGS (2)
  1. AMANTADINE HYDROCHLORIDE [Suspect]
     Active Substance: AMANTADINE HYDROCHLORIDE
     Indication: Hereditary ataxia
  2. RILUZOLE [Concomitant]
     Active Substance: RILUZOLE
     Indication: Hereditary ataxia

REACTIONS (1)
  - Drug withdrawal syndrome [Recovering/Resolving]
